FAERS Safety Report 4399236-8 (Version None)
Quarter: 2004Q3

REPORT INFORMATION
  Report Type: 
  Country: None (occurrence: None)
  Receive Date: 20040716
  Receipt Date: 20040709
  Transmission Date: 20050211
  Serious: Yes (Hospitalization)
  Sender: FDA-Public Use
  Company Number: PHFR2004GB02777

PATIENT
  Sex: Female

DRUGS (3)
  1. CLOZARIL [Suspect]
     Dosage: 1400 MG OVERDOSE
     Route: 048
  2. QUETIAPINE [Suspect]
  3. ZOPICLONE [Suspect]

REACTIONS (3)
  - ACCIDENTAL EXPOSURE [None]
  - OVERDOSE [None]
  - SELF-MEDICATION [None]
